FAERS Safety Report 20580186 (Version 1)
Quarter: 2022Q1

REPORT INFORMATION
  Report Type: Report from Study
  Country: CN (occurrence: None)
  Receive Date: 20220310
  Receipt Date: 20220310
  Transmission Date: 20220423
  Serious: Yes (Hospitalization)
  Sender: FDA-Public Use
  Company Number: CN-ROCHE-2761409

PATIENT
  Age: 57 Year
  Sex: Female
  Weight: 67.5 kg

DRUGS (44)
  1. FARICIMAB [Suspect]
     Active Substance: FARICIMAB
     Indication: Diabetic retinal oedema
     Dosage: DATE OF MOST RECENT DOSE OF MASKED STUDY DRUG PRIOR TO SAE ONSET: 06/JAN/2021 (13:58)?DATE OF MOST R
     Route: 050
     Dates: start: 20200326
  2. PLACEBO [Suspect]
     Active Substance: UNSPECIFIED INGREDIENT
     Indication: Diabetic retinal oedema
     Dosage: DATE OF MOST RECENT DOSE OF MASKED STUDY DRUG PRIOR TO SAE ONSET: 06/JAN/2021 (13:58)?DATE OF MOST R
     Route: 050
     Dates: start: 20200326
  3. RANIBIZUMAB [Suspect]
     Active Substance: RANIBIZUMAB
     Indication: Diabetic retinal oedema
     Dosage: DATE OF MOST RECENT DOSE OF RANIBIZUMAB PRIOR TO SAE ONSET 11/JAN/2021 (15:12)?DATE OF MOST RECENT D
     Route: 050
     Dates: start: 20200521
  4. EPALRESTAT [Concomitant]
     Active Substance: EPALRESTAT
     Indication: Diabetes mellitus
     Route: 048
     Dates: start: 2018
  5. ACARBOSE [Concomitant]
     Active Substance: ACARBOSE
     Indication: Diabetes mellitus
     Route: 048
     Dates: start: 2010
  6. GLIMEPIRIDE [Concomitant]
     Active Substance: GLIMEPIRIDE
     Indication: Diabetes mellitus
     Route: 048
     Dates: start: 2017
  7. INSULIN ASPART 30 [Concomitant]
     Indication: Diabetes mellitus
     Route: 030
     Dates: start: 2014
  8. BAI LING CAPSULE [Concomitant]
     Route: 048
     Dates: start: 201910
  9. OFLOXACIN [Concomitant]
     Active Substance: OFLOXACIN
     Route: 047
     Dates: start: 20200521, end: 20200521
  10. OFLOXACIN [Concomitant]
     Active Substance: OFLOXACIN
     Route: 047
     Dates: start: 20200629, end: 20200629
  11. OFLOXACIN [Concomitant]
     Active Substance: OFLOXACIN
     Route: 047
     Dates: start: 20200727, end: 20200727
  12. OFLOXACIN [Concomitant]
     Active Substance: OFLOXACIN
     Route: 047
     Dates: start: 20200831, end: 20200831
  13. OFLOXACIN [Concomitant]
     Active Substance: OFLOXACIN
     Route: 047
     Dates: start: 20200930, end: 20200930
  14. OFLOXACIN [Concomitant]
     Active Substance: OFLOXACIN
     Route: 047
     Dates: start: 20201102, end: 20201102
  15. LEVOFLOXACIN [Concomitant]
     Active Substance: LEVOFLOXACIN
     Route: 047
     Dates: start: 20200519, end: 20200520
  16. LEVOFLOXACIN [Concomitant]
     Active Substance: LEVOFLOXACIN
     Route: 047
     Dates: start: 20200522, end: 20200528
  17. LEVOFLOXACIN [Concomitant]
     Active Substance: LEVOFLOXACIN
     Route: 047
     Dates: start: 20200629, end: 20200629
  18. LEVOFLOXACIN [Concomitant]
     Active Substance: LEVOFLOXACIN
     Route: 047
     Dates: start: 20200627, end: 20200706
  19. LEVOFLOXACIN [Concomitant]
     Active Substance: LEVOFLOXACIN
     Route: 047
     Dates: start: 20200728, end: 20200803
  20. LEVOFLOXACIN [Concomitant]
     Active Substance: LEVOFLOXACIN
     Route: 047
     Dates: start: 20200901, end: 20200907
  21. LEVOFLOXACIN [Concomitant]
     Active Substance: LEVOFLOXACIN
     Route: 047
     Dates: start: 20200927, end: 20200929
  22. LEVOFLOXACIN [Concomitant]
     Active Substance: LEVOFLOXACIN
     Route: 047
     Dates: start: 20201001, end: 20201007
  23. LEVOFLOXACIN [Concomitant]
     Active Substance: LEVOFLOXACIN
     Route: 047
     Dates: start: 20201030, end: 20201101
  24. LEVOFLOXACIN [Concomitant]
     Active Substance: LEVOFLOXACIN
     Route: 047
     Dates: start: 20201103, end: 20201109
  25. LEVOFLOXACIN [Concomitant]
     Active Substance: LEVOFLOXACIN
     Route: 047
     Dates: start: 20200724, end: 20200726
  26. LEVOFLOXACIN [Concomitant]
     Active Substance: LEVOFLOXACIN
     Route: 047
     Dates: start: 20200828, end: 20200830
  27. TOBRAMYCIN AND DEXAMETHASONE [Concomitant]
     Active Substance: DEXAMETHASONE\TOBRAMYCIN
     Indication: Infection
     Route: 047
     Dates: start: 20200522, end: 20200524
  28. TOBRAMYCIN AND DEXAMETHASONE [Concomitant]
     Active Substance: DEXAMETHASONE\TOBRAMYCIN
     Route: 047
     Dates: start: 20200630, end: 20200702
  29. TOBRAMYCIN AND DEXAMETHASONE [Concomitant]
     Active Substance: DEXAMETHASONE\TOBRAMYCIN
     Route: 047
     Dates: start: 20201103, end: 20201105
  30. TOBRAMYCIN AND DEXAMETHASONE [Concomitant]
     Active Substance: DEXAMETHASONE\TOBRAMYCIN
     Route: 047
     Dates: start: 20200727, end: 20200727
  31. TOBRAMYCIN AND DEXAMETHASONE [Concomitant]
     Active Substance: DEXAMETHASONE\TOBRAMYCIN
     Route: 047
     Dates: start: 20200831, end: 20200831
  32. TOBRAMYCIN AND DEXAMETHASONE [Concomitant]
     Active Substance: DEXAMETHASONE\TOBRAMYCIN
     Route: 047
     Dates: start: 20200930, end: 20200930
  33. TOBRAMYCIN AND DEXAMETHASONE [Concomitant]
     Active Substance: DEXAMETHASONE\TOBRAMYCIN
     Route: 047
     Dates: start: 20201102, end: 20201102
  34. TOBRAMYCIN AND DEXAMETHASONE [Concomitant]
     Active Substance: DEXAMETHASONE\TOBRAMYCIN
     Route: 047
     Dates: start: 20210111, end: 20210111
  35. SODIUM HYALURONATE [Concomitant]
     Active Substance: HYALURONATE SODIUM
     Route: 047
     Dates: start: 20200630, end: 20200712
  36. SODIUM HYALURONATE [Concomitant]
     Active Substance: HYALURONATE SODIUM
     Route: 047
     Dates: start: 20200728, end: 20200806
  37. SODIUM HYALURONATE [Concomitant]
     Active Substance: HYALURONATE SODIUM
     Route: 047
     Dates: start: 20200901, end: 20200908
  38. SODIUM HYALURONATE [Concomitant]
     Active Substance: HYALURONATE SODIUM
     Route: 047
     Dates: start: 20201001, end: 20201013
  39. SODIUM HYALURONATE [Concomitant]
     Active Substance: HYALURONATE SODIUM
     Route: 047
     Dates: start: 20201103, end: 20201110
  40. SODIUM HYALURONATE [Concomitant]
     Active Substance: HYALURONATE SODIUM
     Route: 047
     Dates: start: 20200522, end: 20200528
  41. SODIUM HYALURONATE [Concomitant]
     Active Substance: HYALURONATE SODIUM
     Route: 047
     Dates: start: 20210112, end: 20210118
  42. EXTRACT OF GINKGO BILOBA LEAVES INJECTION [Concomitant]
     Indication: Diabetic retinopathy
     Route: 048
     Dates: start: 20200811, end: 202009
  43. METHAZOLAMIDE [Concomitant]
     Active Substance: METHAZOLAMIDE
     Route: 048
     Dates: start: 20210121, end: 20210121
  44. FU FANG XUE SHUAN TONG [Concomitant]
     Route: 048
     Dates: start: 2018

REACTIONS (1)
  - Cataract [Recovered/Resolved]

NARRATIVE: CASE EVENT DATE: 20200601
